FAERS Safety Report 18171198 (Version 1)
Quarter: 2020Q3

REPORT INFORMATION
  Report Type: Spontaneous
  Country: SE (occurrence: SE)
  Receive Date: 20200819
  Receipt Date: 20200819
  Transmission Date: 20201103
  Serious: Yes (Other)
  Sender: FDA-Public Use
  Company Number: SE-PFIZER INC-2020320351

PATIENT
  Age: 62 Year
  Sex: Female

DRUGS (1)
  1. XELJANZ [Suspect]
     Active Substance: TOFACITINIB CITRATE
     Indication: JUVENILE IDIOPATHIC ARTHRITIS
     Dosage: UNK
     Dates: end: 20200114

REACTIONS (2)
  - Hepatitis [Unknown]
  - Hepatic failure [Unknown]

NARRATIVE: CASE EVENT DATE: 20200120
